FAERS Safety Report 6770494-5 (Version None)
Quarter: 2010Q2

REPORT INFORMATION
  Report Type: 
  Country: None (occurrence: None)
  Receive Date: 20100615
  Receipt Date: 20100608
  Transmission Date: 20101027
  Serious: Yes (Hospitalization, Other)
  Sender: FDA-Public Use
  Company Number: US-ROCHE-706652

PATIENT
  Sex: Male
  Weight: 60.9 kg

DRUGS (5)
  1. BEVACIZUMAB [Suspect]
     Indication: GLIOBLASTOMA
     Route: 042
     Dates: start: 20100514
  2. IRINOTECAN [Suspect]
     Indication: GLIOBLASTOMA
     Route: 042
     Dates: start: 20100514
  3. TEMODAR [Suspect]
     Indication: GLIOBLASTOMA
     Route: 048
     Dates: start: 20100514, end: 20100518
  4. ZANTAC [Concomitant]
  5. DECADRON [Concomitant]

REACTIONS (3)
  - ATELECTASIS [None]
  - PULMONARY EMBOLISM [None]
  - THROMBOSIS [None]
